FAERS Safety Report 13355679 (Version 1)
Quarter: 2017Q1

REPORT INFORMATION
  Report Type: Spontaneous
  Country: US (occurrence: US)
  Receive Date: 20170321
  Receipt Date: 20170321
  Transmission Date: 20170429
  Serious: No
  Sender: FDA-Public Use
  Company Number: US-BAUSCH-BL-2016-022741

PATIENT
  Age: 58 Year
  Sex: Female

DRUGS (2)
  1. RETIN-A MICRO [Suspect]
     Active Substance: TRETINOIN
     Indication: ACNE
     Dosage: ONCE AT NIGHTTIME
     Route: 061
     Dates: start: 2015
  2. RETIN-A MICRO [Suspect]
     Active Substance: TRETINOIN
     Dosage: TWICE A DAY
     Route: 061

REACTIONS (2)
  - Application site dryness [Unknown]
  - Drug ineffective [Unknown]
